FAERS Safety Report 10225476 (Version 1)
Quarter: 2014Q2

REPORT INFORMATION
  Report Type: Spontaneous
  Country: US (occurrence: US)
  Receive Date: 20140609
  Receipt Date: 20140609
  Transmission Date: 20141212
  Serious: Yes (Other)
  Sender: FDA-Public Use
  Company Number: US-ASTELLAS-2014US001871

PATIENT
  Age: 56 Year
  Sex: Female

DRUGS (1)
  1. PROGRAF [Suspect]
     Indication: HEART TRANSPLANT
     Dosage: 1.5 MG, UID/QD (1 MG IN MORNING NAD 0.5 MG IN EVENING)
     Route: 048

REACTIONS (4)
  - Anger [Unknown]
  - Sleep disorder [Unknown]
  - Confusional state [Unknown]
  - Depression [Unknown]
